FAERS Safety Report 18573149 (Version 1)
Quarter: 2020Q4

REPORT INFORMATION
  Report Type: Spontaneous
  Country: US (occurrence: US)
  Receive Date: 20201203
  Receipt Date: 20201203
  Transmission Date: 20210114
  Serious: Yes (Death, Hospitalization, Other)
  Sender: FDA-Public Use
  Company Number: US-HRARD-202000903

PATIENT
  Age: 73 Year
  Sex: Male

DRUGS (2)
  1. MITOTANE [Suspect]
     Active Substance: MITOTANE
     Indication: CHEMOTHERAPY
     Dosage: 02 TABLETS 08 TIMES DAILY
     Route: 065
     Dates: start: 202011
  2. ISTURISA [Suspect]
     Active Substance: OSILODROSTAT PHOSPHATE
     Indication: PITUITARY-DEPENDENT CUSHING^S SYNDROME
     Dosage: 2 DF, QD (01 TABLET TWICE DAILY)
     Route: 065
     Dates: start: 202011

REACTIONS (5)
  - Gait disturbance [Unknown]
  - Disease progression [Fatal]
  - Delirium [Recovered/Resolved]
  - Asthenia [Not Recovered/Not Resolved]
  - Decreased appetite [Not Recovered/Not Resolved]

NARRATIVE: CASE EVENT DATE: 202011
